FAERS Safety Report 6723771-8 (Version None)
Quarter: 2010Q2

REPORT INFORMATION
  Report Type: 
  Country: None (occurrence: None)
  Receive Date: 20100513
  Receipt Date: 20100506
  Transmission Date: 20101027
  Serious: Yes (Hospitalization)
  Sender: FDA-Public Use
  Company Number: CA-ASTRAZENECA-2010SE21084

PATIENT
  Age: 85 Year
  Sex: Female
  Weight: 78 kg

DRUGS (8)
  1. ARIMIDEX [Suspect]
     Route: 048
  2. FERROUS GLUCONATE [Concomitant]
     Route: 065
  3. FRAGMIN [Concomitant]
     Route: 065
  4. HYZAAR [Concomitant]
     Route: 065
  5. INSULIN [Concomitant]
     Route: 065
  6. METFORMIN HYDROCHLORIDE [Concomitant]
     Route: 065
  7. PARIET [Concomitant]
     Route: 065
  8. VITAMIN B-12 [Concomitant]
     Route: 065

REACTIONS (2)
  - DEPRESSION [None]
  - SUICIDAL IDEATION [None]
